FAERS Safety Report 24929224 (Version 2)
Quarter: 2025Q1

REPORT INFORMATION
  Report Type: Spontaneous
  Country: BR (occurrence: BR)
  Receive Date: 20250205
  Receipt Date: 20250305
  Transmission Date: 20250409
  Serious: Yes (Other)
  Sender: SANDOZ
  Company Number: BR-SANDOZ-SDZ2025BR006354

PATIENT
  Sex: Female

DRUGS (2)
  1. RIBOCICLIB [Suspect]
     Active Substance: RIBOCICLIB
     Indication: Product used for unknown indication
     Dosage: 2 DF, QD, (DECEMBER 10 AND 15, 2024)
     Route: 065
     Dates: end: 202412
  2. FILGRASTIM [Suspect]
     Active Substance: FILGRASTIM
     Indication: Immunosuppression
     Route: 065

REACTIONS (7)
  - Neutropenia [Recovered/Resolved]
  - Analgesic therapy [Recovered/Resolved]
  - Joint swelling [Not Recovered/Not Resolved]
  - White blood cell disorder [Recovered/Resolved]
  - Immune system disorder [Recovered/Resolved]
  - Arthralgia [Not Recovered/Not Resolved]
  - Drug ineffective [Unknown]

NARRATIVE: CASE EVENT DATE: 20241201
